FAERS Safety Report 12237240 (Version 1)
Quarter: 2016Q2

REPORT INFORMATION
  Report Type: Spontaneous
  Country: US (occurrence: None)
  Receive Date: 20160404
  Receipt Date: 20160404
  Transmission Date: 20160815
  Serious: Yes (Hospitalization)
  Sender: FDA-Public Use
  Company Number: None

PATIENT
  Age: 68 Year
  Sex: Female
  Weight: 44.5 kg

DRUGS (16)
  1. LEVOFLOXACIN. [Concomitant]
     Active Substance: LEVOFLOXACIN
  2. CITALOPRAM [Concomitant]
     Active Substance: CITALOPRAM HYDROBROMIDE
  3. NICOTINE. [Concomitant]
     Active Substance: NICOTINE
  4. GABAPENTIN. [Concomitant]
     Active Substance: GABAPENTIN
  5. FENTANYL. [Concomitant]
     Active Substance: FENTANYL
  6. REMERON [Concomitant]
     Active Substance: MIRTAZAPINE
  7. OMEPRAZOLE. [Concomitant]
     Active Substance: OMEPRAZOLE
  8. MULTIVITAMIN [Concomitant]
     Active Substance: VITAMINS
  9. DACLATASVIR 60MG BMS [Suspect]
     Active Substance: DACLATASVIR
     Indication: HEPATITIS C
     Route: 048
     Dates: start: 20151116, end: 20160207
  10. OXYCODONE [Concomitant]
     Active Substance: OXYCODONE
  11. TACROLIMUS. [Concomitant]
     Active Substance: TACROLIMUS
  12. CELLCEPT [Concomitant]
     Active Substance: MYCOPHENOLATE MOFETIL\MYCOPHENOLATE MOFETIL HYDROCHLORIDE
  13. SOFOSBUVIR 400MG GILEAD [Suspect]
     Active Substance: SOFOSBUVIR
     Indication: HEPATITIS C
     Route: 048
     Dates: start: 20151116, end: 20160207
  14. LORAZEPAM. [Concomitant]
     Active Substance: LORAZEPAM
  15. ABILIFY [Concomitant]
     Active Substance: ARIPIPRAZOLE
  16. VITAMIN D [Concomitant]
     Active Substance: CHOLECALCIFEROL

REACTIONS (8)
  - Diarrhoea [None]
  - Sepsis [None]
  - Candida infection [None]
  - Condition aggravated [None]
  - Acute kidney injury [None]
  - Clostridium test positive [None]
  - Pneumonia [None]
  - Immunosuppression [None]

NARRATIVE: CASE EVENT DATE: 20151231
